FAERS Safety Report 7811886-2 (Version None)
Quarter: 2011Q4

REPORT INFORMATION
  Report Type: 
  Country: None (occurrence: None)
  Receive Date: 20111013
  Receipt Date: 20111001
  Transmission Date: 20120403
  Serious: Yes (Other)
  Sender: FDA-Public Use
  Company Number: PHHY2011BR87085

PATIENT
  Sex: Female

DRUGS (5)
  1. DESOGESTREL [Concomitant]
     Indication: CONTRACEPTION
     Dosage: 1 TAB DAILY
  2. RITALIN [Suspect]
     Indication: ATTENTION DEFICIT/HYPERACTIVITY DISORDER
     Dosage: 2 TABS, DAILY (MORNING AND AFTERNOON)
     Route: 048
  3. ZOLPIDEM TARTRATE [Concomitant]
     Indication: DEPRESSION
     Dosage: 1 TAB DAILY
     Route: 048
     Dates: start: 20110501
  4. EFFEXOR XR [Concomitant]
     Indication: DEPRESSION
     Dosage: 1 TAD DAILY
     Route: 048
  5. LAMOTRIGINE [Concomitant]
     Indication: DEPRESSION
     Dosage: 1 TAB DAILY
     Route: 048

REACTIONS (5)
  - ABDOMINAL PAIN [None]
  - DISTURBANCE IN ATTENTION [None]
  - VOMITING [None]
  - CHOLELITHIASIS [None]
  - DECREASED APPETITE [None]
